FAERS Safety Report 8552706-0 (Version None)
Quarter: 2012Q3

REPORT INFORMATION
  Report Type: 
  Country: None (occurrence: None)
  Receive Date: 20120731
  Receipt Date: 20120716
  Transmission Date: 20120928
  Serious: Yes (Other)
  Sender: FDA-Public Use
  Company Number: PHEH2012US014749

PATIENT
  Sex: Female

DRUGS (2)
  1. LOPRESSOR [Suspect]
     Dosage: 50 MG, TID
  2. LOPRESSOR [Suspect]
     Dosage: 0.5 DF(100 MG), UNK

REACTIONS (7)
  - FEELING ABNORMAL [None]
  - CRYING [None]
  - HEADACHE [None]
  - FEELING COLD [None]
  - DYSSTASIA [None]
  - DIZZINESS [None]
  - WRONG TECHNIQUE IN DRUG USAGE PROCESS [None]
